FAERS Safety Report 6872541-9 (Version None)
Quarter: 2010Q3

REPORT INFORMATION
  Report Type: 
  Country: None (occurrence: None)
  Receive Date: 20100723
  Receipt Date: 20081106
  Transmission Date: 20110219
  Serious: No
  Sender: FDA-Public Use
  Company Number: US-PFIZER INC-2008084316

PATIENT
  Sex: Female
  Weight: 58.06 kg

DRUGS (7)
  1. CHANTIX [Suspect]
     Indication: SMOKING CESSATION THERAPY
     Route: 048
     Dates: end: 20080901
  2. DIAZEPAM [Concomitant]
  3. HYDROCODONE BITARTRATE [Concomitant]
  4. CYMBALTA [Concomitant]
  5. SPIRONOLACTONE [Concomitant]
  6. LYRICA [Concomitant]
  7. ATIVAN [Concomitant]

REACTIONS (3)
  - CHEST PAIN [None]
  - DYSPNOEA [None]
  - SKIN DISORDER [None]
